FAERS Safety Report 16963171 (Version 4)
Quarter: 2020Q4

REPORT INFORMATION
  Report Type: Report from Study
  Country: FR (occurrence: FR)
  Receive Date: 20191025
  Receipt Date: 20201223
  Transmission Date: 20210113
  Serious: Yes (Death, Other)
  Sender: FDA-Public Use
  Company Number: FR-JAZZ-2019-FR-010817

PATIENT

DRUGS (2)
  1. DEFITELIO [Suspect]
     Active Substance: DEFIBROTIDE SODIUM
     Dosage: 20 MG/KG/DAY
     Route: 042
     Dates: start: 20141029
  2. DEFITELIO [Suspect]
     Active Substance: DEFIBROTIDE SODIUM
     Indication: PROPHYLAXIS
     Dosage: 23 MG/KG/DAY
     Dates: start: 20140130, end: 20140220

REACTIONS (7)
  - Infection [Fatal]
  - Multiple organ dysfunction syndrome [Fatal]
  - Acute myeloid leukaemia recurrent [Unknown]
  - Venoocclusive disease [Fatal]
  - Off label use [Unknown]
  - Graft versus host disease [Fatal]
  - Haemorrhage [Unknown]

NARRATIVE: CASE EVENT DATE: 20140130
